FAERS Safety Report 4353580-9 (Version None)
Quarter: 2004Q2

REPORT INFORMATION
  Report Type: 
  Country: None (occurrence: None)
  Receive Date: 20040505
  Receipt Date: 20040423
  Transmission Date: 20050107
  Serious: Yes (Hospitalization)
  Sender: FDA-Public Use
  Company Number: FR-GLAXOSMITHKLINE-B0331230A

PATIENT
  Age: 10 Year
  Sex: Male

DRUGS (6)
  1. LAMICTAL [Suspect]
     Indication: EPILEPSY
     Dosage: 90MG PER DAY
     Route: 048
  2. DEPAKENE [Concomitant]
     Indication: EPILEPSY
     Dosage: 900MG PER DAY
     Route: 048
  3. RIVOTRIL [Concomitant]
     Indication: EPILEPSY
     Dosage: 14DROP PER DAY
     Route: 048
  4. VITAMIN D [Concomitant]
     Indication: RENAL FAILURE
     Dosage: 3DROP PER DAY
     Route: 048
  5. BICARBONATE [Concomitant]
     Indication: RENAL FAILURE
  6. CALCIUM [Concomitant]
     Indication: RENAL FAILURE
     Route: 048

REACTIONS (3)
  - ABDOMINAL PAIN [None]
  - SUBILEUS [None]
  - VOMITING [None]
